FAERS Safety Report 6655713-8 (Version None)
Quarter: 2010Q1

REPORT INFORMATION
  Report Type: 
  Country: None (occurrence: None)
  Receive Date: 20100329
  Receipt Date: 20100317
  Transmission Date: 20100710
  Serious: Yes (Hospitalization)
  Sender: FDA-Public Use
  Company Number: JP-ROCHE-610265

PATIENT
  Sex: Male

DRUGS (26)
  1. MYCOPHENOLATE MOFETIL [Suspect]
     Indication: PROPHYLAXIS AGAINST TRANSPLANT REJECTION
     Route: 048
     Dates: start: 20081216, end: 20090119
  2. MYCOPHENOLATE MOFETIL [Suspect]
     Route: 048
     Dates: start: 20090120, end: 20090124
  3. MYCOPHENOLATE MOFETIL [Suspect]
     Dosage: DOSE INCREASED
     Route: 048
     Dates: start: 20090125, end: 20090203
  4. MYCOPHENOLATE MOFETIL [Suspect]
     Route: 048
     Dates: start: 20090204, end: 20090204
  5. MYCOPHENOLATE MOFETIL [Suspect]
     Route: 048
     Dates: start: 20090221, end: 20090316
  6. MYCOPHENOLATE MOFETIL [Suspect]
     Dosage: OSE INCREASED
     Route: 048
     Dates: start: 20090508, end: 20090626
  7. MYCOPHENOLATE MOFETIL [Suspect]
     Route: 048
     Dates: start: 20090627, end: 20100218
  8. MYCOPHENOLATE MOFETIL [Suspect]
     Route: 048
     Dates: start: 20100219
  9. NEORAL [Suspect]
     Indication: PROPHYLAXIS AGAINST TRANSPLANT REJECTION
     Route: 048
     Dates: start: 20081221
  10. NEORAL [Suspect]
     Route: 048
     Dates: start: 20090925, end: 20091224
  11. NEORAL [Suspect]
     Route: 048
     Dates: start: 20091225, end: 20100302
  12. NEORAL [Suspect]
     Route: 048
     Dates: start: 20100303
  13. MEDROL [Suspect]
     Indication: PROPHYLAXIS AGAINST TRANSPLANT REJECTION
     Route: 048
     Dates: start: 20081220
  14. NEUER [Concomitant]
     Route: 048
     Dates: start: 20081217
  15. ALLOID G [Concomitant]
     Dosage: FORM: PERORAL LIQUID PREPARATION
     Route: 048
     Dates: start: 20081217
  16. ALUMINIUM HYDROXIDE/MAGNESIUM HYDROXIDE [Concomitant]
     Dosage: DRUG REPORTED AS MALFA; FORM: PERORAL LIQUID PREPARATION
     Route: 048
     Dates: start: 20081217
  17. FUNGIZONE [Concomitant]
     Route: 048
     Dates: start: 20081217
  18. LANSOPRAZOLE [Concomitant]
     Route: 048
     Dates: start: 20081218
  19. BAKTAR [Concomitant]
     Route: 048
     Dates: start: 20081223
  20. ZOVIRAX [Concomitant]
     Route: 048
     Dates: start: 20081223
  21. ISODINE [Concomitant]
     Dosage: FORM: GARGLE, INCLUDE ASPECT; ROUTE: OROPHARINGEAL; NOTE: DOSAGE ADJUSTED;DIVIDED INTO 4 DOSES
     Route: 048
     Dates: start: 20081223
  22. BENAMBAX [Concomitant]
     Dosage: FORM: RESPIRATORY TONIC; ROUTE: RESPIRATORY (INHALATION)
     Route: 055
     Dates: start: 20081224
  23. LIPITOR [Concomitant]
     Route: 048
     Dates: start: 20090107
  24. NADIFLOXACIN [Concomitant]
     Dosage: DRUG REPORTED: ACUATIM; FORM: OINTMENT AND CREAM
     Route: 061
     Dates: start: 20090113
  25. URINORM [Concomitant]
     Dates: start: 20090213
  26. ALENDRONATE SODIUM [Concomitant]
     Route: 048
     Dates: start: 20090313

REACTIONS (3)
  - COMPLICATIONS OF TRANSPLANTED KIDNEY [None]
  - CYTOMEGALOVIRUS INFECTION [None]
  - URETERIC ANASTOMOSIS COMPLICATION [None]
